FAERS Safety Report 4897542-1 (Version None)
Quarter: 2006Q1

REPORT INFORMATION
  Report Type: 
  Country: None (occurrence: None)
  Receive Date: 20060130
  Receipt Date: 20060130
  Transmission Date: 20060701
  Serious: Yes (Hospitalization)
  Sender: FDA-Public Use
  Company Number: None

PATIENT
  Sex: Male
  Weight: 65 kg

DRUGS (1)
  1. MINOCYCLINE HCL [Suspect]
     Indication: INFECTION
     Dosage: 100 MG BID PO
     Route: 048
     Dates: start: 20051016, end: 20051026

REACTIONS (6)
  - ASTHENIA [None]
  - CHILLS [None]
  - DIARRHOEA [None]
  - HEPATOTOXICITY [None]
  - PYREXIA [None]
  - RASH [None]
